FAERS Safety Report 13654951 (Version 1)
Quarter: 2017Q2

REPORT INFORMATION
  Report Type: Spontaneous
  Country: CH (occurrence: CH)
  Receive Date: 20170615
  Receipt Date: 20170615
  Transmission Date: 20170830
  Serious: Yes (Life-Threatening, Hospitalization)
  Sender: FDA-Public Use
  Company Number: CH-ASTRAZENECA-2017SE62402

PATIENT
  Age: 64 Year
  Sex: Male

DRUGS (1)
  1. BRILIQUE [Suspect]
     Active Substance: TICAGRELOR
     Route: 048

REACTIONS (3)
  - Diverticulitis intestinal haemorrhagic [Unknown]
  - Haemoglobin decreased [Unknown]
  - Haemorrhoidal haemorrhage [Unknown]
